FAERS Safety Report 9330792 (Version 2)
Quarter: 2013Q3

REPORT INFORMATION
  Report Type: Spontaneous
  Country: FR (occurrence: FR)
  Receive Date: 20130605
  Receipt Date: 20130712
  Transmission Date: 20140515
  Serious: Yes (Hospitalization)
  Sender: FDA-Public Use
  Company Number: FR-ROCHE-1232063

PATIENT
  Age: 60 Year
  Sex: Female
  Weight: 69 kg

DRUGS (4)
  1. XOLAIR [Suspect]
     Indication: ASTHMA
     Route: 058
     Dates: start: 2008
  2. CRESTOR [Concomitant]
  3. MICARDIS [Concomitant]
  4. CORTANCYL [Concomitant]

REACTIONS (1)
  - Ischaemic stroke [Recovered/Resolved]
